FAERS Safety Report 5752636-3 (Version None)
Quarter: 2008Q2

REPORT INFORMATION
  Report Type: 
  Country: None (occurrence: None)
  Receive Date: 20080527
  Receipt Date: 20080527
  Transmission Date: 20081010
  Serious: Yes (Hospitalization)
  Sender: FDA-Public Use
  Company Number: None

PATIENT
  Age: 49 Year
  Sex: Male
  Weight: 99.7913 kg

DRUGS (4)
  1. OCTREOTIDE ACETATE [Suspect]
     Indication: METASTASES TO LIVER
     Dosage: 100 MCG SUBCUTANEOUSLY EVERY 8 HOURS SQ 25 MCG EVERY 8 HOURS SQ
     Route: 058
     Dates: start: 20080502, end: 20080502
  2. OCTREOTIDE ACETATE [Suspect]
     Indication: NEUROENDOCRINE TUMOUR
     Dosage: 100 MCG SUBCUTANEOUSLY EVERY 8 HOURS SQ 25 MCG EVERY 8 HOURS SQ
     Route: 058
     Dates: start: 20080502, end: 20080502
  3. OCTREOTIDE ACETATE [Suspect]
     Indication: METASTASES TO LIVER
     Dosage: 100 MCG SUBCUTANEOUSLY EVERY 8 HOURS SQ 25 MCG EVERY 8 HOURS SQ
     Route: 058
     Dates: start: 20080519, end: 20080520
  4. OCTREOTIDE ACETATE [Suspect]
     Indication: NEUROENDOCRINE TUMOUR
     Dosage: 100 MCG SUBCUTANEOUSLY EVERY 8 HOURS SQ 25 MCG EVERY 8 HOURS SQ
     Route: 058
     Dates: start: 20080519, end: 20080520

REACTIONS (5)
  - DEHYDRATION [None]
  - POOR QUALITY DRUG ADMINISTERED [None]
  - PYREXIA [None]
  - TACHYCARDIA [None]
  - THERAPEUTIC PRODUCT CONTAMINATION [None]
